FAERS Safety Report 5746675-6 (Version None)
Quarter: 2008Q2

REPORT INFORMATION
  Report Type: 
  Country: None (occurrence: None)
  Receive Date: 20080522
  Receipt Date: 20080519
  Transmission Date: 20081010
  Serious: Yes (Hospitalization, Other)
  Sender: FDA-Public Use
  Company Number: AU-AVENTIS-200811450GDDC

PATIENT
  Age: 62 Year
  Sex: Male

DRUGS (6)
  1. LANTUS [Suspect]
     Route: 058
     Dates: start: 20070201
  2. AUTOPEN INSULIN INJECTION PEN [Suspect]
     Route: 058
  3. ACTRAPID HM PENFILL [Concomitant]
     Route: 058
  4. ATACAND [Concomitant]
     Indication: HYPERTENSION
     Route: 048
  5. DIAFORMIN [Concomitant]
     Route: 048
  6. DILTIAZEM [Concomitant]
     Route: 048

REACTIONS (2)
  - BLOOD GLUCOSE INCREASED [None]
  - STAPHYLOCOCCAL INFECTION [None]
